FAERS Safety Report 5581054-6 (Version None)
Quarter: 2007Q4

REPORT INFORMATION
  Report Type: 
  Country: None (occurrence: None)
  Receive Date: 20071130
  Receipt Date: 20070710
  Transmission Date: 20080405
  Serious: No
  Sender: FDA-Public Use
  Company Number: US200707002664

PATIENT
  Age: 57 Year
  Sex: Male
  Weight: 122.4 kg

DRUGS (4)
  1. BYETTA [Suspect]
     Indication: TYPE 2 DIABETES MELLITUS
     Dosage: 5 UG, SUBCUTANEOUS ; 10 UG, 3/D, SUBCUTANEOUS
     Route: 058
     Dates: start: 20070101, end: 20070101
  2. BYETTA [Suspect]
     Indication: TYPE 2 DIABETES MELLITUS
     Dosage: 5 UG, SUBCUTANEOUS ; 10 UG, 3/D, SUBCUTANEOUS
     Route: 058
     Dates: start: 20070101
  3. INSULIN (INSULIN) [Concomitant]
  4. ALL OTHER THERAPEUTIC PRODUCTS [Concomitant]

REACTIONS (5)
  - BLOOD GLUCOSE INCREASED [None]
  - FATIGUE [None]
  - HYPERHIDROSIS [None]
  - SOMNOLENCE [None]
  - WEIGHT INCREASED [None]
